FAERS Safety Report 10868997 (Version 1)
Quarter: 2015Q1

REPORT INFORMATION
  Report Type: Spontaneous
  Country: IT (occurrence: IT)
  Receive Date: 20150225
  Receipt Date: 20150225
  Transmission Date: 20150721
  Serious: Yes (Other)
  Sender: FDA-Public Use
  Company Number: IT-009507513-1502ITA009127

PATIENT
  Age: 67 Year

DRUGS (7)
  1. REBETOL [Suspect]
     Active Substance: RIBAVIRIN
     Dosage: 2 DOSES, ONE AT 10 AM AND ONE AT 10 PM
     Route: 048
     Dates: start: 2015
  2. TORADIUR [Concomitant]
  3. GLIBOMET [Concomitant]
     Active Substance: GLYBURIDE\METFORMIN HYDROCHLORIDE
  4. SOVALDI [Suspect]
     Active Substance: SOFOSBUVIR
     Indication: CHRONIC HEPATITIS C
     Dosage: 1 DOSE, QD
     Route: 048
     Dates: start: 20150124
  5. TAREG [Concomitant]
     Active Substance: VALSARTAN
  6. LOBIVON [Concomitant]
     Active Substance: NEBIVOLOL HYDROCHLORIDE
  7. REBETOL [Suspect]
     Active Substance: RIBAVIRIN
     Indication: CHRONIC HEPATITIS C
     Dosage: 3 DOSES, QD
     Route: 048
     Dates: start: 20150124, end: 2015

REACTIONS (4)
  - Abdominal pain [Unknown]
  - Insomnia [Unknown]
  - Tachycardia [Unknown]
  - Flatulence [Unknown]

NARRATIVE: CASE EVENT DATE: 20150130
